FAERS Safety Report 7717067-5 (Version None)
Quarter: 2011Q3

REPORT INFORMATION
  Report Type: 
  Country: None (occurrence: None)
  Receive Date: 20110830
  Receipt Date: 20110822
  Transmission Date: 20111222
  Serious: Yes (Life-Threatening, Hospitalization, Other)
  Sender: FDA-Public Use
  Company Number: US-BIOGENIDEC-2010BI007110

PATIENT
  Age: 53 Year
  Sex: Male
  Weight: 85 kg

DRUGS (16)
  1. TYSABRI [Suspect]
     Indication: MULTIPLE SCLEROSIS
     Route: 042
     Dates: start: 20080305
  2. AMBIEN [Concomitant]
     Indication: INSOMNIA
     Route: 048
  3. ANTIDEPRESSANTS [Concomitant]
     Indication: DEPRESSION
  4. ACETALOZAMIDE [Concomitant]
     Route: 048
  5. ABILIFY [Concomitant]
     Indication: DEPRESSION
     Dates: start: 20100106
  6. PAXIL [Concomitant]
     Indication: DEPRESSION
     Dates: start: 20100101
  7. REMERON [Concomitant]
     Indication: DEPRESSION
     Route: 048
  8. ACETALOZAMIDE [Concomitant]
     Indication: ASTHENIA
     Dates: start: 20061122, end: 20090209
  9. ATIVAN [Concomitant]
     Indication: ANXIETY
     Route: 048
  10. DIPHENHYDRAMINE HCL [Concomitant]
     Route: 048
     Dates: start: 20100326, end: 20100326
  11. TOPAMAX [Concomitant]
     Indication: AFFECTIVE DISORDER
     Route: 048
     Dates: start: 20060413, end: 20081124
  12. LIPITOR [Concomitant]
     Indication: HYPERCHOLESTEROLAEMIA
     Dates: start: 20061130
  13. LEVITRA [Concomitant]
     Indication: ERECTILE DYSFUNCTION
     Route: 048
     Dates: start: 20081017
  14. EFFEXOR [Concomitant]
     Indication: DEPRESSION
     Dates: start: 20100101
  15. PRISTIQ [Concomitant]
     Indication: DEPRESSION
     Route: 048
     Dates: start: 20100106
  16. CITALOPRAM [Concomitant]
     Indication: DEPRESSION
     Route: 048

REACTIONS (4)
  - MAJOR DEPRESSION [None]
  - DEPRESSION SUICIDAL [None]
  - SUICIDE ATTEMPT [None]
  - ACUTE RESPIRATORY FAILURE [None]
